FAERS Safety Report 5341364-4 (Version None)
Quarter: 2007Q2

REPORT INFORMATION
  Report Type: 
  Country: None (occurrence: None)
  Receive Date: 20070404
  Receipt Date: 20070103
  Transmission Date: 20071010
  Serious: Yes (Other)
  Sender: FDA-Public Use
  Company Number: 2006134813

PATIENT
  Age: 14 Year
  Sex: Female
  Weight: 68.9 kg

DRUGS (5)
  1. GEODON [Suspect]
     Indication: BIPOLAR DISORDER
     Dosage: 160 MG (80 MG,2 IN 1 D),ORAL
     Route: 048
     Dates: start: 20050211
  2. CLOZARPIL (CLOZAPINE) [Concomitant]
  3. LITHIUM CARBONATE [Concomitant]
  4. TRAZODONE HCL [Concomitant]
  5. METFORMIN HCL [Concomitant]

REACTIONS (1)
  - ELECTROCARDIOGRAM QT CORRECTED INTERVAL PROLONGED [None]
